FAERS Safety Report 15269059 (Version 3)
Quarter: 2018Q4

REPORT INFORMATION
  Report Type: Spontaneous
  Country: JP (occurrence: JP)
  Receive Date: 20180813
  Receipt Date: 20181218
  Transmission Date: 20190204
  Serious: Yes (Other)
  Sender: FDA-Public Use
  Company Number: JP-009507513-1807JPN001540J

PATIENT
  Age: 61 Year
  Sex: Male

DRUGS (37)
  1. SOLDEM 3A [Concomitant]
     Active Substance: CARBOHYDRATES\POTASSIUM CHLORIDE\SODIUM CHLORIDE\SODIUM LACTATE
     Indication: FLUID REPLACEMENT
     Dosage: 500 ML, QID
     Route: 051
     Dates: start: 20180601, end: 20180604
  2. MYCOPHENOLATE MOFETIL. [Concomitant]
     Active Substance: MYCOPHENOLATE MOFETIL
     Dosage: 500 MG, BID,AT 9:00,21:00
     Dates: start: 20180703, end: 20180705
  3. ASPARA K [Concomitant]
     Active Substance: POTASSIUM ASPARTATE
     Indication: HYPOKALAEMIA
     Dosage: 3-5KIT A DAY
     Route: 051
     Dates: start: 20180601, end: 20180604
  4. TERPERAN [Concomitant]
     Active Substance: METOCLOPRAMIDE HYDROCHLORIDE
     Dosage: UNK UNK, BID
     Route: 065
     Dates: start: 20180611, end: 20180611
  5. TERPERAN [Concomitant]
     Active Substance: METOCLOPRAMIDE HYDROCHLORIDE
     Dosage: UNK UNK, QD
     Route: 065
     Dates: start: 20180623, end: 20180624
  6. GENTACIN [Concomitant]
     Active Substance: GENTAMICIN SULFATE
     Indication: ANAL FISTULA
     Dosage: UNK
     Route: 003
     Dates: start: 20180526, end: 20180806
  7. TAKEPRON [Concomitant]
     Active Substance: LANSOPRAZOLE
     Dosage: 30 MG, BID
     Route: 051
     Dates: start: 20180531, end: 20180806
  8. FULCALIQ [Concomitant]
     Active Substance: AMINO ACIDS\CARBOHYDRATES\ELECTROLYTES NOS\VITAMINS
     Indication: FLUID REPLACEMENT
     Dosage: 903 ML, QD
     Route: 051
     Dates: start: 20180604, end: 20180605
  9. FULCALIQ [Concomitant]
     Active Substance: AMINO ACIDS\CARBOHYDRATES\ELECTROLYTES NOS\VITAMINS
     Indication: FLUID REPLACEMENT
     Dosage: 1003 ML, BID
     Route: 051
     Dates: start: 20180606, end: 20180709
  10. FILGRASTIM BS[BIOSIMILAR 1] [Concomitant]
     Indication: COLONY STIMULATING FACTOR THERAPY
     Dosage: 525 MICROGRAM, UNK
     Route: 051
     Dates: start: 20180603, end: 20180614
  11. TERPERAN [Concomitant]
     Active Substance: METOCLOPRAMIDE HYDROCHLORIDE
     Dosage: UNK UNK, QD
     Route: 065
     Dates: start: 20180615, end: 20180615
  12. TERPERAN [Concomitant]
     Active Substance: METOCLOPRAMIDE HYDROCHLORIDE
     Dosage: UNK UNK, QD
     Route: 065
     Dates: start: 20180621, end: 20180621
  13. TERPERAN [Concomitant]
     Active Substance: METOCLOPRAMIDE HYDROCHLORIDE
     Dosage: UNK UNK, TID
     Route: 065
     Dates: start: 20180627, end: 20180627
  14. TERPERAN [Concomitant]
     Active Substance: METOCLOPRAMIDE HYDROCHLORIDE
     Dosage: UNK UNK, QD
     Route: 065
     Dates: start: 20180628, end: 20180629
  15. ACICLOVIR [Concomitant]
     Active Substance: ACYCLOVIR
     Indication: ANTIVIRAL PROPHYLAXIS
     Dosage: 250 MG, BID
     Route: 051
     Dates: start: 20180531, end: 20180625
  16. MAXIPIME [Concomitant]
     Active Substance: CEFEPIME HYDROCHLORIDE
     Indication: INFECTION PROPHYLAXIS
     Dosage: 2 G, BID
     Route: 051
     Dates: start: 20180526, end: 20180601
  17. SOLDEM 3A [Concomitant]
     Active Substance: CARBOHYDRATES\POTASSIUM CHLORIDE\SODIUM CHLORIDE\SODIUM LACTATE
     Dosage: 500 MG, QD
     Route: 051
     Dates: start: 20180622, end: 20180711
  18. MORPHINE HYDROCHLORIDE HYDRATE [Concomitant]
     Active Substance: MORPHINE HYDROCHLORIDE
     Indication: PAIN
     Dosage: 1A/1-2DAY
     Route: 051
     Dates: start: 20180610, end: 20180626
  19. TERPERAN [Concomitant]
     Active Substance: METOCLOPRAMIDE HYDROCHLORIDE
     Dosage: UNK UNK, QD
     Route: 065
     Dates: start: 20180609, end: 20180609
  20. TERPERAN [Concomitant]
     Active Substance: METOCLOPRAMIDE HYDROCHLORIDE
     Dosage: UNK UNK, BID
     Route: 065
     Dates: start: 20180630, end: 20180630
  21. AZUNOL [Concomitant]
     Active Substance: SODIUM GUALENATE
     Indication: ANAL FISTULA
     Dosage: UNK
     Route: 003
     Dates: start: 20180526, end: 20180806
  22. MYCOPHENOLATE MOFETIL. [Concomitant]
     Active Substance: MYCOPHENOLATE MOFETIL
     Dosage: 500 MG, BID
     Route: 048
     Dates: start: 20180629, end: 20180702
  23. FINIBAX [Concomitant]
     Active Substance: DORIPENEM MONOHYDRATE
     Indication: INFECTION PROPHYLAXIS
     Dosage: 1 G, TID
     Route: 051
     Dates: start: 20180601, end: 20180613
  24. ISOTONIC SODIUM CHLORIDE SOLUTION HIKARI [Concomitant]
     Dosage: 500 ML, QD
     Route: 051
     Dates: start: 20180606, end: 20180806
  25. VENOGLOBULIN IH [Concomitant]
     Active Substance: HUMAN IMMUNOGLOBULIN G
     Indication: FLUID REPLACEMENT
     Dosage: 100 UNK, UNK
     Route: 051
     Dates: start: 20180602, end: 20180604
  26. ACELIO [Concomitant]
     Active Substance: ACETAMINOPHEN
     Indication: PAIN
     Dosage: UNK UNK, PRN
     Route: 051
     Dates: start: 20180624, end: 20180624
  27. MYCOPHENOLATE MOFETIL. [Concomitant]
     Active Substance: MYCOPHENOLATE MOFETIL
     Indication: PROPHYLAXIS AGAINST GRAFT VERSUS HOST DISEASE
     Dosage: 9:00 1000MG?21:00 750MG
     Route: 048
     Dates: start: 20180604, end: 20180628
  28. ISOTONIC SODIUM CHLORIDE SOLUTION HIKARI [Concomitant]
     Indication: FLUID REPLACEMENT
     Dosage: 500 ML, BID
     Route: 051
     Dates: start: 20180601, end: 20180605
  29. TERPERAN [Concomitant]
     Active Substance: METOCLOPRAMIDE HYDROCHLORIDE
     Dosage: UNK UNK, BID
     Route: 065
     Dates: start: 20180613, end: 20180614
  30. TERPERAN [Concomitant]
     Active Substance: METOCLOPRAMIDE HYDROCHLORIDE
     Dosage: UNK UNK, BID
     Route: 065
     Dates: start: 20180617, end: 20180617
  31. PREVYMIS [Suspect]
     Active Substance: LETERMOVIR
     Dosage: 240 MILLIGRAM, QD
     Route: 041
     Dates: start: 20180714, end: 20180718
  32. FUNGUARD [Concomitant]
     Active Substance: MICAFUNGIN SODIUM
     Indication: INFECTION PROPHYLAXIS
     Dosage: 50 UNK, UNK
     Route: 051
     Dates: start: 20180526, end: 20180806
  33. TERPERAN [Concomitant]
     Active Substance: METOCLOPRAMIDE HYDROCHLORIDE
     Dosage: UNK UNK, BID
     Route: 065
     Dates: start: 20180625, end: 20180625
  34. PREVYMIS [Suspect]
     Active Substance: LETERMOVIR
     Indication: ANTIVIRAL PROPHYLAXIS
     Dosage: 480 MILLIGRAM, QD
     Route: 041
     Dates: start: 20180529, end: 20180713
  35. PROGRAF [Concomitant]
     Active Substance: TACROLIMUS\TACROLIMUS ANHYDROUS
     Indication: IMMUNOSUPPRESSION
     Dosage: UNK
     Route: 051
     Dates: start: 20180603, end: 20180806
  36. TERPERAN [Concomitant]
     Active Substance: METOCLOPRAMIDE HYDROCHLORIDE
     Dosage: UNK UNK, QD
     Route: 051
     Dates: start: 20180601, end: 20180601
  37. TERPERAN [Concomitant]
     Active Substance: METOCLOPRAMIDE HYDROCHLORIDE
     Dosage: UNK UNK, TID
     Route: 065
     Dates: start: 20180612, end: 20180612

REACTIONS (1)
  - Graft versus host disease [Recovered/Resolved]

NARRATIVE: CASE EVENT DATE: 201806
